FAERS Safety Report 24824902 (Version 1)
Quarter: 2025Q1

REPORT INFORMATION
  Report Type: Spontaneous
  Country: US (occurrence: US)
  Receive Date: 20250109
  Receipt Date: 20250109
  Transmission Date: 20250408
  Serious: Yes (Hospitalization, Other)
  Sender: RECKITT BENCKISER
  Company Number: US-PROD-AS2-212756134-20-25-USA-RB-0000073

PATIENT
  Age: 89 Year
  Sex: Male
  Weight: 70.307 kg

DRUGS (2)
  1. DELSYM COUGH [Suspect]
     Active Substance: DEXTROMETHORPHAN HYDROBROMIDE
     Indication: Nasopharyngitis
     Dosage: 10 ML, BID
     Route: 048
     Dates: start: 20241230
  2. DELSYM COUGH [Suspect]
     Active Substance: DEXTROMETHORPHAN HYDROBROMIDE
     Indication: Rhinorrhoea

REACTIONS (8)
  - Pneumonia [Recovering/Resolving]
  - Pulmonary pain [Recovering/Resolving]
  - Illness [Recovering/Resolving]
  - Influenza [Recovering/Resolving]
  - Chest pain [Recovering/Resolving]
  - Cough [Recovering/Resolving]
  - Oxygen saturation abnormal [Recovered/Resolved]
  - Product use in unapproved indication [Recovering/Resolving]

NARRATIVE: CASE EVENT DATE: 20250101
